FAERS Safety Report 4764531-7 (Version None)
Quarter: 2005Q3

REPORT INFORMATION
  Report Type: 
  Country: None (occurrence: None)
  Receive Date: 20050906
  Receipt Date: 20050818
  Transmission Date: 20060218
  Serious: Yes (Hospitalization)
  Sender: FDA-Public Use
  Company Number: US_0508120995

PATIENT
  Age: 58 Year

DRUGS (3)
  1. HUMULIN N [Suspect]
  2. HUMULIN R [Suspect]
  3. PREDNISONE [Concomitant]

REACTIONS (2)
  - ASTHMA [None]
  - BLOOD GLUCOSE INCREASED [None]
